FAERS Safety Report 24225162 (Version 2)
Quarter: 2024Q3

REPORT INFORMATION
  Report Type: Spontaneous
  Country: DE (occurrence: DE)
  Receive Date: 20240820
  Receipt Date: 20240830
  Transmission Date: 20241016
  Serious: Yes (Life-Threatening, Hospitalization, Other)
  Sender: MACLEODS
  Company Number: DE-MACLEODS PHARMA-MAC2024048836

PATIENT

DRUGS (1)
  1. LIDOCAINE [Suspect]
     Active Substance: LIDOCAINE
     Indication: Local anaesthesia
     Route: 065

REACTIONS (7)
  - Respiratory failure [Recovered/Resolved]
  - Generalised tonic-clonic seizure [Recovered/Resolved]
  - Local anaesthetic systemic toxicity [Recovered/Resolved]
  - Sinus tachycardia [Recovered/Resolved]
  - Status epilepticus [Recovered/Resolved]
  - Altered state of consciousness [Recovered/Resolved]
  - Accidental overdose [Unknown]
